FAERS Safety Report 8228702-X (Version None)
Quarter: 2012Q1

REPORT INFORMATION
  Report Type: 
  Country: None (occurrence: None)
  Receive Date: 20120322
  Receipt Date: 20120314
  Transmission Date: 20120608
  Serious: No
  Sender: FDA-Public Use
  Company Number: US-BAYER-2012-026571

PATIENT
  Age: 57 Year
  Sex: Female
  Weight: 136 kg

DRUGS (12)
  1. PROTONIX [Concomitant]
  2. CALCIUM CARBONATE [Concomitant]
  3. NIACIN [Concomitant]
  4. LIPITOR [Concomitant]
  5. ALEVE (CAPLET) [Suspect]
     Indication: ANALGESIC THERAPY
     Dosage: UNK, PRN
     Route: 048
  6. LANTUS [Concomitant]
  7. AMLODIPINE [Concomitant]
  8. METOPROLOL SUCCINATE [Concomitant]
  9. ASCORBIC ACID [Concomitant]
  10. SYNTHROID [Concomitant]
  11. MULTI-VITAMIN [Concomitant]
  12. COQ10 [Concomitant]

REACTIONS (1)
  - BLOOD GLUCOSE INCREASED [None]
